FAERS Safety Report 19769010 (Version 2)
Quarter: 2021Q3

REPORT INFORMATION
  Report Type: Spontaneous
  Country: RO (occurrence: RO)
  Receive Date: 20210831
  Receipt Date: 20210914
  Transmission Date: 20211014
  Serious: Yes (Other)
  Sender: FDA-Public Use
  Company Number: RO-SA-2021SA284894

PATIENT
  Age: 27 Year
  Sex: Male

DRUGS (2)
  1. LEMTRADA [Suspect]
     Active Substance: ALEMTUZUMAB
     Indication: MULTIPLE SCLEROSIS
     Dosage: 12MG, QD
  2. LEMTRADA [Suspect]
     Active Substance: ALEMTUZUMAB
     Dosage: 12MG, QD
     Dates: start: 20210607, end: 20210611

REACTIONS (5)
  - Urinary sediment present [Recovered/Resolved]
  - Proteinuria [Recovered/Resolved]
  - Renal pain [Unknown]
  - Urine analysis abnormal [Recovered/Resolved]
  - Urine ketone body [Recovered/Resolved]

NARRATIVE: CASE EVENT DATE: 20210809
